FAERS Safety Report 23831708 (Version 1)
Quarter: 2024Q2

REPORT INFORMATION
  Report Type: Spontaneous
  Country: CN (occurrence: CN)
  Receive Date: 20240508
  Receipt Date: 20240508
  Transmission Date: 20240716
  Serious: Yes (Other)
  Sender: FDA-Public Use
  Company Number: None

PATIENT
  Age: 42 Year
  Sex: Female
  Weight: 62.5 kg

DRUGS (4)
  1. CYCLOPHOSPHAMIDE [Suspect]
     Active Substance: CYCLOPHOSPHAMIDE
     Indication: Breast cancer female
     Dosage: 0.9 G, ONE TIME IN ONE DAY DILUTED WITH 0.9% SODIUM CHLORIDE 50 ML, D1
     Route: 041
     Dates: start: 20240322, end: 20240322
  2. SODIUM CHLORIDE [Suspect]
     Active Substance: SODIUM CHLORIDE
     Indication: Medication dilution
     Dosage: 50 ML, 0.9%, ONE TIME IN ONE DAY, (DOSAGE FROM: INJECTION) USED TO DILUTE CYCLOPHOSPHAMIDE FOR 0.9 G
     Route: 041
     Dates: start: 20240322, end: 20240322
  3. DEXTROSE [Suspect]
     Active Substance: DEXTROSE\DEXTROSE MONOHYDRATE
     Indication: Medication dilution
     Dosage: 750 ML, 5%, ONE TIME IN ONE DAY, (DOSAGE FROM: INJECTION) USED TO DILUTE LIPOSOMAL DOXORUBICIN 52 MG
     Route: 041
     Dates: start: 20240322, end: 20240322
  4. DOXORUBICIN HYDROCHLORIDE [Suspect]
     Active Substance: DOXORUBICIN HYDROCHLORIDE
     Indication: Breast cancer female
     Dosage: 52 MG, ONE TIME IN ONE DAY DILUTED WITH 5 % GLUCOSE INJECTION 750 ML, D1, SELF-PREPARED
     Route: 041
     Dates: start: 20240322, end: 20240322

REACTIONS (1)
  - Leukopenia [Unknown]

NARRATIVE: CASE EVENT DATE: 20240411
